FAERS Safety Report 5839770-4 (Version None)
Quarter: 2008Q3

REPORT INFORMATION
  Report Type: 
  Country: None (occurrence: None)
  Receive Date: 20080811
  Receipt Date: 20080805
  Transmission Date: 20090109
  Serious: Yes (Death, Other)
  Sender: FDA-Public Use
  Company Number: PHHO2008US09139

PATIENT
  Sex: Male
  Weight: 102 kg

DRUGS (2)
  1. PROLEUKIN [Suspect]
     Indication: METASTATIC RENAL CELL CARCINOMA
     Dosage: 7 MU/M2 5 DAYS A WEEK, 3 OF EVERY 4 WEEKS
     Route: 058
     Dates: start: 20031117, end: 20040823
  2. ZOLEDRONIC ACID [Suspect]
     Indication: METASTATIC RENAL CELL CARCINOMA
     Dosage: 4 MG, EVERY 4 WEEKS
     Route: 042
     Dates: start: 20031117, end: 20040823

REACTIONS (5)
  - ANOREXIA [None]
  - MALIGNANT NEOPLASM PROGRESSION [None]
  - NAUSEA [None]
  - VOMITING [None]
  - WEIGHT DECREASED [None]
